FAERS Safety Report 16532983 (Version 1)
Quarter: 2019Q3

REPORT INFORMATION
  Report Type: Spontaneous
  Country: BR (occurrence: BR)
  Receive Date: 20190705
  Receipt Date: 20190705
  Transmission Date: 20191004
  Serious: Yes (Other)
  Sender: FDA-Public Use
  Company Number: BR-BAYER-2019-121819

PATIENT
  Age: 37 Year
  Sex: Female

DRUGS (1)
  1. GADOVIST [Suspect]
     Active Substance: GADOBUTROL
     Dosage: UNK (81661J , 74658F OR KTO2254 - ONE OF THESE LOTS WAS USED)

REACTIONS (4)
  - Pain in extremity [None]
  - Thrombophlebitis superficial [None]
  - Injection site pain [None]
  - Peripheral swelling [None]
